FAERS Safety Report 11163552 (Version 1)
Quarter: 2015Q2

REPORT INFORMATION
  Report Type: Spontaneous
  Country: US (occurrence: None)
  Receive Date: 20150603
  Receipt Date: 20150603
  Transmission Date: 20150821
  Serious: No
  Sender: FDA-Public Use
  Company Number: None

PATIENT
  Age: 60 Year
  Sex: Female
  Weight: 94.35 kg

DRUGS (6)
  1. MELOXICAM. [Concomitant]
     Active Substance: MELOXICAM
  2. LEVOTHYROXINE [Concomitant]
     Active Substance: LEVOTHYROXINE
  3. HEP C MEDS [Concomitant]
  4. SOVALDI [Suspect]
     Active Substance: SOFOSBUVIR
     Indication: HEPATITIS C
     Route: 048
     Dates: start: 20150401
  5. TRIAMCINOLONE [Concomitant]
     Active Substance: TRIAMCINOLONE
  6. METHOTREXATE [Concomitant]
     Active Substance: METHOTREXATE

REACTIONS (18)
  - Fatigue [None]
  - Dysgeusia [None]
  - Asthenia [None]
  - Syncope [None]
  - Rash [None]
  - Tinnitus [None]
  - Constipation [None]
  - Weight decreased [None]
  - Decreased appetite [None]
  - Disturbance in attention [None]
  - Irritability [None]
  - Memory impairment [None]
  - Overdose [None]
  - Nausea [None]
  - Heart rate increased [None]
  - Chills [None]
  - Oral pain [None]
  - Insomnia [None]

NARRATIVE: CASE EVENT DATE: 20150409
